FAERS Safety Report 19651989 (Version 1)
Quarter: 2021Q3

REPORT INFORMATION
  Report Type: Spontaneous
  Country: US (occurrence: US)
  Receive Date: 20210803
  Receipt Date: 20210803
  Transmission Date: 20211014
  Serious: Yes (Other)
  Sender: FDA-Public Use
  Company Number: US-PFIZER INC-202100934323

PATIENT
  Age: 46 Year
  Sex: Female

DRUGS (4)
  1. HYDROMORPHONE HYDROCHLORIDE. [Suspect]
     Active Substance: HYDROMORPHONE HYDROCHLORIDE
     Indication: PROCEDURAL PAIN
     Dosage: 0.3 MG
     Route: 042
  2. HYDROMORPHONE HYDROCHLORIDE. [Suspect]
     Active Substance: HYDROMORPHONE HYDROCHLORIDE
     Dosage: 0.5 MG
     Route: 042
  3. DEXAMETHASONE. [Concomitant]
     Active Substance: DEXAMETHASONE
     Indication: PROCEDURAL PAIN
     Dosage: 5 MG
  4. METHERGINE [Concomitant]
     Active Substance: METHYLERGONOVINE MALEATE
     Indication: PROCEDURAL PAIN
     Dosage: 0.5 MG

REACTIONS (4)
  - Generalised tonic-clonic seizure [Recovered/Resolved]
  - Neurotoxicity [Recovered/Resolved]
  - Vision blurred [Unknown]
  - Dyspnoea [Unknown]
